FAERS Safety Report 21651625 (Version 2)
Quarter: 2022Q4

REPORT INFORMATION
  Report Type: Spontaneous
  Country: IN (occurrence: IN)
  Receive Date: 20221128
  Receipt Date: 20221129
  Transmission Date: 20230113
  Serious: No
  Sender: FDA-Public Use
  Company Number: IN-PFIZER INC-PV202200109747

PATIENT
  Age: 72 Year
  Sex: Female

DRUGS (1)
  1. PALBOCICLIB [Suspect]
     Active Substance: PALBOCICLIB
     Dosage: 125 MG/ONCE A DAY, 3 WEEKS THEN 1 WEEK OFF
     Route: 048
     Dates: start: 202208

REACTIONS (3)
  - Haemoglobin decreased [Unknown]
  - White blood cell count decreased [Unknown]
  - Glycosylated haemoglobin abnormal [Unknown]
